FAERS Safety Report 20018216 (Version 1)
Quarter: 2021Q4

REPORT INFORMATION
  Report Type: Spontaneous
  Country: JP (occurrence: JP)
  Receive Date: 20211101
  Receipt Date: 20211101
  Transmission Date: 20220303
  Serious: Yes (Hospitalization)
  Sender: FDA-Public Use
  Company Number: JP-ORGANON-O2110JPN000410J

PATIENT
  Age: 49 Year
  Sex: Male

DRUGS (2)
  1. CARBIDOPA\LEVODOPA [Suspect]
     Active Substance: CARBIDOPA\LEVODOPA
     Indication: Disability
     Dosage: 100 MILLIGRAM, QD
     Route: 048
  2. CARBIDOPA\LEVODOPA [Suspect]
     Active Substance: CARBIDOPA\LEVODOPA
     Dosage: 200 MILLIGRAM
     Route: 048

REACTIONS (5)
  - Condition aggravated [Unknown]
  - Dysphagia [Unknown]
  - Weight decreased [Unknown]
  - Asthenia [Unknown]
  - Product use in unapproved indication [Unknown]

NARRATIVE: CASE EVENT DATE: 20210701
